FAERS Safety Report 17922573 (Version 3)
Quarter: 2021Q2

REPORT INFORMATION
  Report Type: Report from Study
  Country: IT (occurrence: IT)
  Receive Date: 20200622
  Receipt Date: 20210616
  Transmission Date: 20210717
  Serious: Yes (Hospitalization)
  Sender: FDA-Public Use
  Company Number: NVSC2020IT092647

PATIENT
  Age: 68 Year
  Sex: Female
  Weight: 49 kg

DRUGS (17)
  1. NAPORAFENIB. [Suspect]
     Active Substance: NAPORAFENIB
     Dosage: 400 MG, BID
     Route: 048
     Dates: start: 20200319, end: 20200330
  2. ARMOLIPID [Concomitant]
     Indication: HYPERCHOLESTEROLAEMIA
     Dosage: UNK
     Route: 065
     Dates: start: 2017
  3. DEXAMETHASONE. [Concomitant]
     Active Substance: DEXAMETHASONE
     Indication: BACK PAIN
     Dosage: UNK
     Route: 065
     Dates: start: 20200304, end: 20200406
  4. SOLDESAM [Concomitant]
     Active Substance: DEXAMETHASONE
     Indication: BACK PAIN
     Dosage: UNK
     Route: 065
     Dates: start: 20200407, end: 20200416
  5. NAPORAFENIB. [Suspect]
     Active Substance: NAPORAFENIB
     Indication: NON-SMALL CELL LUNG CANCER METASTATIC
     Dosage: 400 MG, BID
     Route: 048
     Dates: start: 20200317, end: 20200317
  6. NAPORAFENIB. [Suspect]
     Active Substance: NAPORAFENIB
     Dosage: 100 MG, BID
     Route: 048
     Dates: start: 20200402, end: 20200403
  7. TRAMETINIB [Suspect]
     Active Substance: TRAMETINIB
     Indication: NON-SMALL CELL LUNG CANCER
     Dosage: 1 MG, BID
     Route: 048
     Dates: start: 20200317, end: 20200330
  8. FLUBASON [Concomitant]
     Active Substance: DESOXIMETASONE
     Indication: RASH
     Dosage: UNK
     Route: 065
     Dates: start: 20200331
  9. FAMOTIDINE. [Concomitant]
     Active Substance: FAMOTIDINE
     Indication: PROPHYLAXIS
     Dosage: UNK
     Route: 065
     Dates: start: 20200304, end: 20200417
  10. PARACETAMOL [Concomitant]
     Active Substance: ACETAMINOPHEN
     Dosage: UNK
     Route: 065
     Dates: start: 20200316
  11. SELEPARINA [Concomitant]
     Active Substance: NADROPARIN CALCIUM
     Indication: THROMBOSIS PROPHYLAXIS
     Dosage: 0.6 ML, UNK
     Route: 065
     Dates: start: 20200306
  12. NAPORAFENIB. [Suspect]
     Active Substance: NAPORAFENIB
     Dosage: 200 MG, BID
     Route: 048
     Dates: start: 20200331, end: 20200401
  13. NAPORAFENIB. [Suspect]
     Active Substance: NAPORAFENIB
     Dosage: 100 MG, BID
     Route: 048
     Dates: start: 20200404, end: 20200405
  14. PARACETAMOL [Concomitant]
     Active Substance: ACETAMINOPHEN
     Indication: BACK PAIN
     Dosage: UNK
     Route: 065
     Dates: start: 20200306, end: 20200315
  15. OMEPRAZOLE. [Concomitant]
     Active Substance: OMEPRAZOLE
     Indication: BACK PAIN
     Dosage: UNK
     Route: 065
     Dates: start: 20200417, end: 20200421
  16. FAMOTIDINE. [Concomitant]
     Active Substance: FAMOTIDINE
     Dosage: UNK
     Route: 065
     Dates: start: 20200422
  17. DERMATOP [Concomitant]
     Active Substance: PREDNICARBATE
     Indication: RASH
     Dosage: 0.25 %, UNK
     Route: 065
     Dates: start: 20200331

REACTIONS (1)
  - Stevens-Johnson syndrome [Not Recovered/Not Resolved]

NARRATIVE: CASE EVENT DATE: 20200403
